FAERS Safety Report 21113585 (Version 3)
Quarter: 2022Q3

REPORT INFORMATION
  Report Type: Spontaneous
  Country: BE (occurrence: BE)
  Receive Date: 20220721
  Receipt Date: 20220923
  Transmission Date: 20221027
  Serious: Yes (Other)
  Sender: FDA-Public Use
  Company Number: BE-NOVARTISPH-NVSC2022BE165535

PATIENT
  Age: 72 Year
  Sex: Female

DRUGS (8)
  1. DEXAMETHASONE [Suspect]
     Active Substance: DEXAMETHASONE
     Indication: Plasma cell myeloma
     Dosage: 20 MG, QW
     Route: 048
     Dates: start: 20180117
  2. REVLIMID [Suspect]
     Active Substance: LENALIDOMIDE
     Indication: Plasma cell myeloma
     Dosage: 25 MG, QD
     Route: 048
     Dates: start: 20180117, end: 20180206
  3. REVLIMID [Suspect]
     Active Substance: LENALIDOMIDE
     Dosage: 0 MG
     Route: 065
     Dates: start: 20180207, end: 20180213
  4. REVLIMID [Suspect]
     Active Substance: LENALIDOMIDE
     Dosage: 25 MG, QD
     Route: 048
     Dates: start: 20180214, end: 20180306
  5. REVLIMID [Suspect]
     Active Substance: LENALIDOMIDE
     Dosage: 0 MG
     Route: 065
     Dates: start: 20180307, end: 20180313
  6. REVLIMID [Suspect]
     Active Substance: LENALIDOMIDE
     Dosage: 0 MG
     Route: 065
     Dates: start: 20180314, end: 20180320
  7. REVLIMID [Suspect]
     Active Substance: LENALIDOMIDE
     Dosage: 25 MG, QD
     Route: 048
     Dates: start: 20180321, end: 20180410
  8. REVLIMID [Suspect]
     Active Substance: LENALIDOMIDE
     Dosage: 0 MG
     Route: 065
     Dates: start: 20180411, end: 20180417

REACTIONS (2)
  - Neutropenia [Recovered/Resolved]
  - Bone lesion [Not Recovered/Not Resolved]

NARRATIVE: CASE EVENT DATE: 20180312
